FAERS Safety Report 26190685 (Version 1)
Quarter: 2025Q4

REPORT INFORMATION
  Report Type: Spontaneous
  Country: EU (occurrence: EU)
  Receive Date: 20251223
  Receipt Date: 20251223
  Transmission Date: 20260118
  Serious: Yes (Other)
  Sender: RANBAXY
  Company Number: EU-SUN PHARMACEUTICAL INDUSTRIES LTD-2025R1-538086

PATIENT
  Age: 70 Year
  Sex: Male

DRUGS (3)
  1. PREGABALIN [Suspect]
     Active Substance: PREGABALIN
     Indication: Phantom limb syndrome
     Dosage: 75 MILLIGRAM, DAILY
     Route: 065
  2. BUPRENORPHINE [Concomitant]
     Active Substance: BUPRENORPHINE
     Indication: Phantom limb syndrome
     Dosage: UNK
     Route: 065
  3. HYDROXYZINE [Concomitant]
     Active Substance: HYDROXYZINE HYDROCHLORIDE
     Indication: Phantom limb syndrome
     Dosage: UNK
     Route: 065

REACTIONS (2)
  - Underdose [Unknown]
  - Therapeutic response decreased [Unknown]
